FAERS Safety Report 9344940 (Version 2)
Quarter: 2013Q2

REPORT INFORMATION
  Report Type: Spontaneous
  Country: US (occurrence: US)
  Receive Date: 20130612
  Receipt Date: 20130628
  Transmission Date: 20140414
  Serious: Yes (Hospitalization, Other)
  Sender: FDA-Public Use
  Company Number: US-PFIZER INC-2013175812

PATIENT
  Sex: Male
  Weight: 132 kg

DRUGS (2)
  1. PRISTIQ [Suspect]
     Indication: DEPRESSION
     Dosage: UNK, 1X/DAY
     Dates: start: 2006, end: 2013
  2. REMERON [Suspect]
     Indication: DEPRESSION
     Dosage: UNK

REACTIONS (4)
  - Diabetes mellitus inadequate control [Unknown]
  - Diabetic ulcer [Unknown]
  - Diabetic neuropathy [Unknown]
  - Musculoskeletal disorder [Unknown]
